FAERS Safety Report 25127290 (Version 1)
Quarter: 2025Q1

REPORT INFORMATION
  Report Type: Report from Study
  Country: GR (occurrence: GR)
  Receive Date: 20250327
  Receipt Date: 20250327
  Transmission Date: 20250409
  Serious: Yes (Other)
  Sender: ROCHE
  Company Number: US-ROCHE-3433709

PATIENT

DRUGS (2)
  1. TOCILIZUMAB [Suspect]
     Active Substance: TOCILIZUMAB
     Indication: COVID-19
     Route: 065
  2. BARICITINIB [Suspect]
     Active Substance: BARICITINIB
     Indication: COVID-19
     Dosage: FOR 14 DAYS
     Route: 065

REACTIONS (8)
  - Drug-induced liver injury [Unknown]
  - Off label use [Unknown]
  - Bacterial infection [Unknown]
  - Deep vein thrombosis [Unknown]
  - Acute kidney injury [Unknown]
  - Acute coronary syndrome [Unknown]
  - Haemorrhage [Unknown]
  - Arrhythmia [Unknown]
